FAERS Safety Report 15495620 (Version 1)
Quarter: 2018Q4

REPORT INFORMATION
  Report Type: Spontaneous
  Country: US (occurrence: US)
  Receive Date: 20181013
  Receipt Date: 20181013
  Transmission Date: 20190205
  Serious: No
  Sender: FDA-Public Use
  Company Number: US-009507513-1809USA011472

PATIENT
  Age: 70 Year
  Sex: Female

DRUGS (2)
  1. DULERA [Suspect]
     Active Substance: FORMOTEROL FUMARATE DIHYDRATE\MOMETASONE FUROATE
     Indication: CHRONIC OBSTRUCTIVE PULMONARY DISEASE
     Dosage: 2 PUFFS/TWICE A DAY
     Route: 055
     Dates: start: 20150727
  2. DULERA [Suspect]
     Active Substance: FORMOTEROL FUMARATE DIHYDRATE\MOMETASONE FUROATE
     Dosage: 2 PUFFS/TWICE A DAY
     Route: 055
     Dates: start: 2018

REACTIONS (4)
  - Dyspnoea [Recovered/Resolved]
  - Malaise [Recovered/Resolved]
  - Product quality issue [Recovered/Resolved]
  - Poor quality product administered [Unknown]

NARRATIVE: CASE EVENT DATE: 201807
